FAERS Safety Report 13087683 (Version 1)
Quarter: 2017Q1

REPORT INFORMATION
  Report Type: Spontaneous
  Country: US (occurrence: US)
  Receive Date: 20170105
  Receipt Date: 20170105
  Transmission Date: 20170428
  Serious: Yes (Death, Hospitalization)
  Sender: FDA-Public Use
  Company Number: US-BAYER-2017-000891

PATIENT
  Age: 57 Year
  Sex: Female

DRUGS (9)
  1. CLORAZEPATE [Suspect]
     Active Substance: CLORAZEPATE DIPOTASSIUM
  2. BUPROPION. [Suspect]
     Active Substance: BUPROPION
  3. CYANOCOBALAMIN. [Suspect]
     Active Substance: CYANOCOBALAMIN
  4. ALCOHOL. [Suspect]
     Active Substance: ALCOHOL
  5. CIMETIDINE [Suspect]
     Active Substance: CIMETIDINE
  6. OMEPRAZOLE. [Suspect]
     Active Substance: OMEPRAZOLE
     Route: 048
  7. CITALOPRAM [Suspect]
     Active Substance: CITALOPRAM HYDROBROMIDE
  8. NAPROXEN SODIUM ({= 220 MG) [Suspect]
     Active Substance: NAPROXEN SODIUM
     Route: 048
  9. ALCOHOL. [Suspect]
     Active Substance: ALCOHOL

REACTIONS (1)
  - Toxicity to various agents [Fatal]
